FAERS Safety Report 4747072-2 (Version None)
Quarter: 2005Q3

REPORT INFORMATION
  Report Type: 
  Country: None (occurrence: None)
  Receive Date: 20050815
  Receipt Date: 20050811
  Transmission Date: 20060218
  Serious: Yes (Hospitalization)
  Sender: FDA-Public Use
  Company Number: TCI2005A02727

PATIENT
  Age: 76 Year
  Sex: Male

DRUGS (5)
  1. LEUPROLIDE ACETATE [Suspect]
     Indication: PROSTATE CANCER
     Dosage: 3.75 MG (3.75 MG,1 IN 28 D) SUBCUTANEOUS
     Route: 058
     Dates: start: 20050215, end: 20050411
  2. HALCION [Suspect]
     Indication: INSOMNIA
     Dosage: PER ORAL
     Route: 048
  3. WARFARIN SODIUM [Suspect]
     Indication: DEEP VEIN THROMBOSIS
     Dosage: PER ORAL
     Route: 048
  4. MAGMITT(MAGNESIUM OXIDE) [Suspect]
     Indication: CONSTIPATION
     Dosage: 3 TAB. (1 TAB., 3 IN 1 D)  PER ORAL
     Route: 048
     Dates: start: 20050420, end: 20050427
  5. POSTERISAN (POSTERISAN) [Suspect]
     Dosage: 4 G (4 G, 1 IN 1 D) TRANSDERMAL
     Route: 062
     Dates: start: 20050420, end: 20050427

REACTIONS (18)
  - ALANINE AMINOTRANSFERASE INCREASED [None]
  - ASPARTATE AMINOTRANSFERASE INCREASED [None]
  - BEDRIDDEN [None]
  - BLOOD BILIRUBIN INCREASED [None]
  - BLOOD LACTATE DEHYDROGENASE INCREASED [None]
  - BLOOD UREA INCREASED [None]
  - CENTRAL VENOUS PRESSURE DECREASED [None]
  - DEHYDRATION [None]
  - FEEDING DISORDER [None]
  - GENERAL PHYSICAL HEALTH DETERIORATION [None]
  - HYPOPITUITARISM [None]
  - INFLAMMATION [None]
  - LUNG DISORDER [None]
  - PLEURAL FIBROSIS [None]
  - SUPRAVENTRICULAR EXTRASYSTOLES [None]
  - THIRST [None]
  - URINE OUTPUT INCREASED [None]
  - VENTRICULAR EXTRASYSTOLES [None]
